FAERS Safety Report 16311096 (Version 2)
Quarter: 2020Q2

REPORT INFORMATION
  Report Type: Spontaneous
  Country: US (occurrence: US)
  Receive Date: 20190514
  Receipt Date: 20200406
  Transmission Date: 20200713
  Serious: Yes (Other)
  Sender: FDA-Public Use
  Company Number: US-GLAXOSMITHKLINE-US2019GSK084864

PATIENT
  Sex: Male

DRUGS (4)
  1. ESOMEPRAZOLE. [Suspect]
     Active Substance: ESOMEPRAZOLE MAGNESIUM
     Indication: GASTROOESOPHAGEAL REFLUX DISEASE
     Dosage: 40 MG, BID
     Route: 065
     Dates: start: 201601
  2. OMEPRAZOLE. [Suspect]
     Active Substance: OMEPRAZOLE
     Indication: PRODUCT USED FOR UNKNOWN INDICATION
     Dosage: 20 MG, BID
     Route: 048
     Dates: start: 20151026
  3. PREVACID [Suspect]
     Active Substance: LANSOPRAZOLE
     Dosage: UNK
     Route: 065
  4. PREVACID [Suspect]
     Active Substance: LANSOPRAZOLE
     Dosage: UNK
     Route: 065

REACTIONS (14)
  - Renal impairment [Unknown]
  - Renal injury [Unknown]
  - Type 2 diabetes mellitus [Unknown]
  - Dialysis [Unknown]
  - Hypertensive nephropathy [Unknown]
  - Myocardial infarction [Unknown]
  - Nephropathy [Unknown]
  - Dysuria [Unknown]
  - Essential hypertension [Unknown]
  - Chronic kidney disease [Unknown]
  - Acute kidney injury [Unknown]
  - Cardiac failure congestive [Unknown]
  - End stage renal disease [Unknown]
  - Diabetic nephropathy [Unknown]
